FAERS Safety Report 17030784 (Version 1)
Quarter: 2019Q4

REPORT INFORMATION
  Report Type: Spontaneous
  Country: US (occurrence: US)
  Receive Date: 20191011
  Receipt Date: 20191011
  Transmission Date: 20200122
  Serious: Yes (Death)
  Sender: FDA-Public Use
  Company Number: None

PATIENT
  Age: 72 Year
  Sex: Male

DRUGS (1)
  1. ACTHAR [Suspect]
     Active Substance: CORTICOTROPIN
     Dosage: ?          OTHER STRENGTH:80 U;OTHER DOSE:80 UNITS;?
     Route: 058
     Dates: start: 201609

REACTIONS (1)
  - Death [None]

NARRATIVE: CASE EVENT DATE: 20191011
